FAERS Safety Report 9914563 (Version 2)
Quarter: 2014Q1

REPORT INFORMATION
  Report Type: Spontaneous
  Country: US (occurrence: US)
  Receive Date: 20140220
  Receipt Date: 20140328
  Transmission Date: 20141002
  Serious: Yes (Hospitalization, Other)
  Sender: FDA-Public Use
  Company Number: US-TAKEDA-2014TUS001183

PATIENT
  Sex: 0

DRUGS (5)
  1. PREVACID [Suspect]
     Indication: GASTROOESOPHAGEAL REFLUX DISEASE
     Dosage: 30 MG, QD
     Route: 048
     Dates: start: 1999
  2. PREVACID [Suspect]
     Dosage: 30 MG, BID
     Route: 048
  3. PREVACID [Suspect]
     Dosage: 30 MG, QD
     Route: 048
  4. LANSOPRAZOLE [Suspect]
     Indication: GASTROOESOPHAGEAL REFLUX DISEASE
     Dosage: UNK
     Dates: start: 201302
  5. CULTURELLE [Concomitant]
     Dosage: 1 DF, QD

REACTIONS (3)
  - Psychotic disorder [Recovering/Resolving]
  - Cataract [Recovered/Resolved]
  - Depression [Recovering/Resolving]
